FAERS Safety Report 7547199-6 (Version None)
Quarter: 2011Q2

REPORT INFORMATION
  Report Type: 
  Country: None (occurrence: None)
  Receive Date: 20110614
  Receipt Date: 20110601
  Transmission Date: 20111010
  Serious: Yes (Life-Threatening, Hospitalization, Other)
  Sender: FDA-Public Use
  Company Number: FR-UCBSA-032241

PATIENT
  Sex: Male
  Weight: 74 kg

DRUGS (10)
  1. CIMZIA [Suspect]
     Route: 058
     Dates: end: 20110414
  2. EQUANIL [Concomitant]
     Indication: AGITATION
     Route: 048
  3. METHOTREXATE SODIUM [Concomitant]
     Route: 048
  4. ASPIRIN [Concomitant]
     Indication: PROPHYLAXIS
     Route: 048
  5. NEXIUM [Concomitant]
     Indication: RHEUMATOID ARTHRITIS
     Route: 048
  6. CIMZIA [Suspect]
     Indication: RHEUMATOID ARTHRITIS
     Route: 058
     Dates: start: 20101125
  7. ACETAMINOPHEN AND TRAMADOL HCL [Concomitant]
  8. DAFLON [Concomitant]
     Indication: VENOUS INSUFFICIENCY
     Route: 048
  9. PREDNISONE [Concomitant]
     Route: 048
  10. FOLIC ACID [Concomitant]

REACTIONS (2)
  - ESCHERICHIA SEPSIS [None]
  - LUNG DISORDER [None]
